FAERS Safety Report 7268714-6 (Version None)
Quarter: 2011Q1

REPORT INFORMATION
  Report Type: 
  Country: None (occurrence: None)
  Receive Date: 20110124
  Receipt Date: 20110111
  Transmission Date: 20110831
  Serious: Yes (Other)
  Sender: FDA-Public Use
  Company Number: 804013

PATIENT
  Age: 70 Year
  Sex: Female

DRUGS (2)
  1. IRINOTECAN HYDROCHLORIDE [Suspect]
     Indication: RECTAL CANCER
     Dosage: 360 MG (MILLIGRAM(S)
     Dates: start: 20100627, end: 20100721
  2. ERBITUX [Suspect]
     Indication: RECTAL CANCER
     Dosage: 800 MG MILLIGRAM(S)
     Dates: start: 20100623, end: 20100721

REACTIONS (3)
  - URINARY TRACT INFECTION [None]
  - DIARRHOEA [None]
  - FEBRILE NEUTROPENIA [None]
